FAERS Safety Report 7663570-6 (Version None)
Quarter: 2011Q3

REPORT INFORMATION
  Report Type: 
  Country: None (occurrence: None)
  Receive Date: 20110805
  Receipt Date: 20100902
  Transmission Date: 20111222
  Serious: No
  Sender: FDA-Public Use
  Company Number: US-ABBOTT-10P-163-0668160-00

PATIENT
  Sex: Male
  Weight: 124.85 kg

DRUGS (2)
  1. NIASPAN [Suspect]
     Indication: LOW DENSITY LIPOPROTEIN INCREASED
     Dosage: AT BEDTIME
     Dates: end: 20080101
  2. NIASPAN [Suspect]
     Dates: start: 20100901

REACTIONS (4)
  - BURNING SENSATION [None]
  - FORMICATION [None]
  - ERYTHEMA [None]
  - FEELING HOT [None]
